FAERS Safety Report 9322011 (Version 1)
Quarter: 2013Q2

REPORT INFORMATION
  Report Type: Spontaneous
  Country: IT (occurrence: None)
  Receive Date: 20130529
  Receipt Date: 20130529
  Transmission Date: 20140414
  Serious: Yes (Other)
  Sender: FDA-Public Use
  Company Number: 1730510

PATIENT
  Age: 43 Year
  Sex: Female

DRUGS (5)
  1. PHENOBARBITAL [Suspect]
     Indication: CONVULSION PROPHYLAXIS
  2. THERAPEUTIC RADIOPHARMACEUTICALS [Suspect]
     Indication: BREAST CANCER
     Dosage: 3000 CGY
  3. THERAPEUTIC RADIOPHARMACEUTICALS [Suspect]
     Indication: METASTASES TO LIVER
     Dosage: 3000 CGY
  4. THERAPEUTIC RADIOPHARMACEUTICALS [Suspect]
     Indication: METASTASES TO BONE
     Dosage: 3000 CGY
  5. THERAPEUTIC RADIOPHARMACEUTICALS [Suspect]
     Indication: METASTASES TO CENTRAL NERVOUS SYSTEM
     Dosage: 3000 CGY

REACTIONS (1)
  - Stevens-Johnson syndrome [None]
